FAERS Safety Report 24054722 (Version 1)
Quarter: 2024Q3

REPORT INFORMATION
  Report Type: Spontaneous
  Country: GB (occurrence: GB)
  Receive Date: 20240705
  Receipt Date: 20240705
  Transmission Date: 20241016
  Serious: Yes (Other)
  Sender: MDD OPERATIONS
  Company Number: GB-MHRA-TPP22763963C9936171YC1718367338647

PATIENT
  Age: 68 Year
  Sex: Male

DRUGS (9)
  1. SAFINAMIDE [Suspect]
     Active Substance: SAFINAMIDE
     Indication: Parkinson^s disease
     Route: 048
     Dates: start: 20240514
  2. SAFINAMIDE [Suspect]
     Active Substance: SAFINAMIDE
     Dosage: 50 MG
     Dates: start: 20240614
  3. HYDROCORTISONE [Concomitant]
     Active Substance: HYDROCORTISONE\HYDROCORTISONE ACETATE
     Dosage: MILD POTENCY STEROID CREAM - APPLY TO THE AFFECT.
     Dates: start: 20240426, end: 20240506
  4. Fifty:50 [Concomitant]
     Dosage: NOT PROVIDED
     Dates: start: 20210921
  5. CARBIDOPA\LEVODOPA [Concomitant]
     Active Substance: CARBIDOPA\LEVODOPA
     Dosage: NOT PROVIDED
     Dates: start: 20231213
  6. VISUXL [Concomitant]
     Dosage: NOT PROVIDED
     Dates: start: 20231213
  7. Evolve HA [Concomitant]
     Dosage: NOT PROVIDED
     Dates: start: 20240112
  8. Hylo night [Concomitant]
     Dosage: APPLY TO THE LEFT EYE AT NIGHT AS DIRECTED
     Dates: start: 20240112
  9. ATORVASTATIN [Concomitant]
     Active Substance: ATORVASTATIN
     Dosage: NOT PROVIDED
     Dates: start: 20240304

REACTIONS (1)
  - Visual impairment [Recovering/Resolving]

NARRATIVE: CASE EVENT DATE: 20240614
